FAERS Safety Report 4569068-6 (Version None)
Quarter: 2005Q1

REPORT INFORMATION
  Report Type: 
  Country: None (occurrence: None)
  Receive Date: 20050203
  Receipt Date: 20050124
  Transmission Date: 20050727
  Serious: Yes (Death)
  Sender: FDA-Public Use
  Company Number: US-NOVOPROD-241827

PATIENT
  Age: 42 Year
  Sex: Male

DRUGS (1)
  1. NOVOSEVEN [Suspect]
     Indication: OPERATIVE HAEMORRHAGE
     Dosage: 1.2 MG, PRN
     Route: 042
     Dates: start: 20041101, end: 20041101

REACTIONS (1)
  - MULTI-ORGAN FAILURE [None]
